FAERS Safety Report 20757759 (Version 2)
Quarter: 2022Q2

REPORT INFORMATION
  Report Type: Spontaneous
  Country: JP (occurrence: None)
  Receive Date: 20220427
  Receipt Date: 20220624
  Transmission Date: 20220721
  Serious: Yes (Other)
  Sender: FDA-Public Use
  Company Number: 2022A158975

PATIENT
  Age: 87 Year
  Sex: Male

DRUGS (9)
  1. DAPAGLIFLOZIN [Suspect]
     Active Substance: DAPAGLIFLOZIN
     Dosage: 10.0MG UNKNOWN
     Route: 048
  2. TIRABRUTINIB HYDROCHLORIDE [Suspect]
     Active Substance: TIRABRUTINIB HYDROCHLORIDE
     Indication: Waldenstrom^s macroglobulinaemia
     Dosage: 240.0MG UNKNOWN
     Route: 048
     Dates: start: 20220406
  3. RITUXAN [Concomitant]
     Active Substance: RITUXIMAB
     Indication: Pleural effusion
     Dates: start: 2021
  4. XARELTO [Concomitant]
     Active Substance: RIVAROXABAN
     Route: 048
  5. PLAVIX [Concomitant]
     Active Substance: CLOPIDOGREL BISULFATE
     Route: 048
  6. ACYCLOVIR [Concomitant]
     Active Substance: ACYCLOVIR
     Indication: Prophylaxis
  7. SULFAMETHOXAZOLE\TRIMETHOPRIM [Concomitant]
     Active Substance: SULFAMETHOXAZOLE\TRIMETHOPRIM
     Indication: Prophylaxis
  8. LASIX [Concomitant]
     Active Substance: FUROSEMIDE
     Dosage: 20 MG + 10 MG
     Route: 048
  9. EPLERENONE [Concomitant]
     Active Substance: EPLERENONE
     Dosage: 25.0MG UNKNOWN
     Route: 048

REACTIONS (4)
  - Urinary retention [Recovering/Resolving]
  - Postrenal failure [Recovering/Resolving]
  - Haemothorax [Unknown]
  - Hyperhidrosis [Unknown]

NARRATIVE: CASE EVENT DATE: 20220101
